FAERS Safety Report 14720356 (Version 4)
Quarter: 2019Q2

REPORT INFORMATION
  Report Type: Spontaneous
  Country: US (occurrence: US)
  Receive Date: 20180405
  Receipt Date: 20190509
  Transmission Date: 20190711
  Serious: Yes (Hospitalization)
  Sender: FDA-Public Use
  Company Number: US-PFIZER INC-2018139477

PATIENT
  Age: 57 Year
  Sex: Female
  Weight: 110 kg

DRUGS (5)
  1. METFORMIN [Concomitant]
     Active Substance: METFORMIN HYDROCHLORIDE
     Dosage: UNK
     Dates: end: 20180911
  2. ATORVASTATIN [Concomitant]
     Active Substance: ATORVASTATIN
     Indication: BLOOD CHOLESTEROL ABNORMAL
     Dosage: UNK
  3. XELJANZ XR [Suspect]
     Active Substance: TOFACITINIB CITRATE
     Indication: RHEUMATOID ARTHRITIS
     Dosage: 11 MG, DAILY (ONE TABLET EVERY DAY)
     Route: 048
     Dates: start: 201804, end: 201804
  4. HYDROXYZINE [Concomitant]
     Active Substance: HYDROXYZINE HYDROCHLORIDE
     Indication: BLOOD PRESSURE ABNORMAL
     Dosage: UNK
  5. LOSARTAN. [Concomitant]
     Active Substance: LOSARTAN
     Indication: BLOOD PRESSURE ABNORMAL
     Dosage: UNK

REACTIONS (8)
  - Abdominal pain [Recovered/Resolved]
  - Nausea [Recovered/Resolved]
  - Malaise [Recovered/Resolved]
  - Diarrhoea [Recovered/Resolved]
  - Pain [Recovered/Resolved]
  - Condition aggravated [Recovered/Resolved]
  - Drug intolerance [Recovered/Resolved]
  - Gastrointestinal disorder [Recovered/Resolved]

NARRATIVE: CASE EVENT DATE: 2018
